FAERS Safety Report 25213716 (Version 1)
Quarter: 2025Q2

REPORT INFORMATION
  Report Type: Spontaneous
  Country: US (occurrence: None)
  Receive Date: 20250417
  Receipt Date: 20250417
  Transmission Date: 20250716
  Serious: Yes (Death)
  Sender: FDA-CTU
  Company Number: None

PATIENT
  Age: 91 Year
  Sex: Female

DRUGS (8)
  1. PRALUENT [Suspect]
     Active Substance: ALIROCUMAB
     Indication: Hypercholesterolaemia
     Route: 058
  2. TUMS CHEWY BITES BERRY 32 METAMUCIL ORIGINAL REG POW 822GM [Concomitant]
  3. GLYCERIN ADULT SUPPOS [Concomitant]
  4. ASPIRIN 81MG EC LOW DOSE TABLETS [Concomitant]
  5. VITAMIN D 1,000IU SOFTGELS [Concomitant]
  6. CALCIUM CIT CHOCOLATE CHEW TABS [Concomitant]
  7. NITROGLYCERIN 0.4MG SUB TABS 100 [Concomitant]
  8. LOSARTAN 25 MG TABLET [Concomitant]

REACTIONS (1)
  - Cerebrovascular accident [None]

NARRATIVE: CASE EVENT DATE: 20250412
